FAERS Safety Report 8903622 (Version 5)
Quarter: 2013Q4

REPORT INFORMATION
  Report Type: Report from Study
  Country: JP (occurrence: JP)
  Receive Date: 20121113
  Receipt Date: 20131118
  Transmission Date: 20140711
  Serious: Yes (Hospitalization)
  Sender: FDA-Public Use
  Company Number: JP-EISAI INC-E7389-03237-CLI-JP

PATIENT
  Age: 52 Year
  Sex: Female
  Weight: 58 kg

DRUGS (5)
  1. E7389 (BOLD) [Suspect]
     Indication: LEIOMYOSARCOMA METASTATIC
     Route: 041
     Dates: start: 20120213, end: 20120528
  2. E7389 (BOLD) [Suspect]
     Route: 041
     Dates: start: 20120625, end: 20121105
  3. WARFARIN [Suspect]
     Indication: THROMBOSIS
     Route: 048
     Dates: start: 20111129, end: 20120601
  4. SOLANAX [Concomitant]
     Indication: ADJUSTMENT DISORDER
     Route: 048
     Dates: start: 20120110
  5. RHYTHMY [Concomitant]
     Route: 048
     Dates: start: 20120112

REACTIONS (1)
  - Tumour haemorrhage [Recovered/Resolved]
